FAERS Safety Report 5384149-5 (Version None)
Quarter: 2007Q3

REPORT INFORMATION
  Report Type: 
  Country: None (occurrence: None)
  Receive Date: 20070706
  Receipt Date: 20070511
  Transmission Date: 20080115
  Serious: No
  Sender: FDA-Public Use
  Company Number: PHEH2007US07358

PATIENT
  Age: 84 Year
  Sex: Female

DRUGS (2)
  1. TEKTURNA [Suspect]
     Indication: HYPERTENSION
     Dosage: QD
  2. PREDNISONE TAB [Suspect]

REACTIONS (1)
  - HYPERTENSION [None]
